FAERS Safety Report 25839098 (Version 1)
Quarter: 2025Q3

REPORT INFORMATION
  Report Type: Other
  Country: CA (occurrence: CA)
  Receive Date: 20250924
  Receipt Date: 20250924
  Transmission Date: 20251020
  Serious: Yes (Other)
  Sender: Atnahs Healthcare
  Company Number: CA-ATNAHS-2025-PMNV-CA001183

PATIENT

DRUGS (1)
  1. EC-NAPROSYN [Suspect]
     Active Substance: NAPROXEN
     Indication: Depression
     Route: 048

REACTIONS (14)
  - Overdose [Unknown]
  - Feeling abnormal [Unknown]
  - Gastrointestinal pain [Unknown]
  - Skin discolouration [Unknown]
  - Cerebral disorder [Unknown]
  - Diarrhoea haemorrhagic [Unknown]
  - Loss of employment [Unknown]
  - Dysarthria [Unknown]
  - Tremor [Unknown]
  - Discomfort [Unknown]
  - Flatulence [Unknown]
  - Constipation [Unknown]
  - Alopecia [Unknown]
  - Tinnitus [Unknown]
